FAERS Safety Report 4895109-2 (Version None)
Quarter: 2006Q1

REPORT INFORMATION
  Report Type: 
  Country: None (occurrence: None)
  Receive Date: 20060126
  Receipt Date: 20060126
  Transmission Date: 20060701
  Serious: Yes (Other)
  Sender: FDA-Public Use
  Company Number: None

PATIENT
  Sex: Female
  Weight: 56 kg

DRUGS (5)
  1. INTERFERON-ALPHA [Suspect]
     Indication: RENAL CELL CARCINOMA STAGE UNSPECIFIED
     Dosage: SEE IMAGE
     Route: 058
     Dates: start: 20051220, end: 20060105
  2. CELEXA [Concomitant]
  3. LUNESTA [Concomitant]
  4. METHADONE [Concomitant]
  5. XANAX [Concomitant]

REACTIONS (3)
  - CONDITION AGGRAVATED [None]
  - DEPRESSION [None]
  - SUICIDAL IDEATION [None]
